FAERS Safety Report 9676025 (Version 1)
Quarter: 2013Q4

REPORT INFORMATION
  Report Type: Spontaneous
  Country: US (occurrence: US)
  Receive Date: 20131107
  Receipt Date: 20131107
  Transmission Date: 20140711
  Serious: Yes (Death, Other)
  Sender: FDA-Public Use
  Company Number: US-PURDUE-USA-2013-0108418

PATIENT
  Age: 75 Year
  Sex: Female

DRUGS (4)
  1. BUTRANS [Suspect]
     Indication: PRODUCT USED FOR UNKNOWN INDICATION
     Route: 062
  2. BENZODIAZEPINE DERIVATIVES [Suspect]
     Indication: PRODUCT USED FOR UNKNOWN INDICATION
  3. SLEEP AID [Suspect]
     Indication: SLEEP DISORDER
  4. DIABETES MEDICATIONS [Suspect]
     Indication: DIABETES MELLITUS

REACTIONS (2)
  - Death [Fatal]
  - Fall [Unknown]
